FAERS Safety Report 24233667 (Version 1)
Quarter: 2024Q3

REPORT INFORMATION
  Report Type: Spontaneous
  Country: US (occurrence: US)
  Receive Date: 20240821
  Receipt Date: 20240821
  Transmission Date: 20241017
  Serious: No
  Sender: PERRIGO
  Company Number: US-PERRIGO-24US003015

PATIENT
  Weight: 46.259 kg

DRUGS (2)
  1. MINOXIDIL [Suspect]
     Active Substance: MINOXIDIL
     Indication: Alopecia
     Dosage: UNKNOWN, UNKNOWN
     Route: 061
     Dates: start: 20240307
  2. MINOXIDIL [Suspect]
     Active Substance: MINOXIDIL
     Dosage: UNKNOWN, UNKNOWN
     Route: 061

REACTIONS (4)
  - Application site erythema [Unknown]
  - Constipation [Unknown]
  - Weight increased [Unknown]
  - Application site pruritus [Unknown]

NARRATIVE: CASE EVENT DATE: 20240301
